FAERS Safety Report 22245758 (Version 1)
Quarter: 2023Q2

REPORT INFORMATION
  Report Type: Spontaneous
  Country: FR (occurrence: FR)
  Receive Date: 20230424
  Receipt Date: 20230424
  Transmission Date: 20230722
  Serious: Yes (Other)
  Sender: FDA-Public Use
  Company Number: None

PATIENT
  Age: 61 Year
  Sex: Female

DRUGS (5)
  1. XANAX [Suspect]
     Active Substance: ALPRAZOLAM
     Indication: Premedication
     Dosage: 1 DOSAGE FORM, 1 TOTAL
     Route: 048
     Dates: start: 20230308, end: 20230308
  2. METHYLPREDNISOLONE [Suspect]
     Active Substance: METHYLPREDNISOLONE
     Indication: Premedication
     Dosage: 60 MILLIGRAM, 1 TOTAL
     Route: 042
     Dates: start: 20230308, end: 20230308
  3. ENHERTU [Suspect]
     Active Substance: FAM-TRASTUZUMAB DERUXTECAN-NXKI
     Indication: Breast cancer
     Dosage: 440 MILLIGRAM, 1 TOTAL
     Route: 042
     Dates: start: 20230308, end: 20230308
  4. EMEND [Suspect]
     Active Substance: APREPITANT
     Indication: Premedication
     Dosage: 280 MILLIGRAM, 1 TOTAL
     Route: 048
     Dates: start: 20230308, end: 20230310
  5. ONDANSETRON [Suspect]
     Active Substance: ONDANSETRON
     Indication: Premedication
     Dosage: 16 MILLIGRAM, 1 TOTAL
     Route: 042
     Dates: start: 20230308, end: 20230308

REACTIONS (1)
  - Thrombocytopenia [Not Recovered/Not Resolved]

NARRATIVE: CASE EVENT DATE: 20230317
